FAERS Safety Report 5004055-5 (Version None)
Quarter: 2006Q2

REPORT INFORMATION
  Report Type: 
  Country: None (occurrence: None)
  Receive Date: 20060515
  Receipt Date: 20060515
  Transmission Date: 20061013
  Serious: Yes (Other)
  Sender: FDA-Public Use
  Company Number: None

PATIENT
  Sex: Male
  Weight: 129.2752 kg

DRUGS (1)
  1. CRESTOR [Suspect]
     Indication: BLOOD CHOLESTEROL INCREASED
     Dosage: 5 MG 1 PER DAY PO
     Route: 048
     Dates: start: 20060201, end: 20060328

REACTIONS (4)
  - MUSCLE TIGHTNESS [None]
  - MYALGIA [None]
  - MYOSITIS [None]
  - PARAESTHESIA [None]
